FAERS Safety Report 23842960 (Version 3)
Quarter: 2024Q2

REPORT INFORMATION
  Report Type: Spontaneous
  Country: US (occurrence: US)
  Receive Date: 20240510
  Receipt Date: 20240514
  Transmission Date: 20240716
  Serious: Yes (Hospitalization)
  Sender: FDA-Public Use
  Company Number: US-JNJFOC-20240504949

PATIENT
  Age: 55 Year
  Sex: Female

DRUGS (1)
  1. PEPCID AC MAXIMUM STRENGTH [Suspect]
     Active Substance: FAMOTIDINE
     Indication: Ulcer
     Dosage: 1/2 TO 1 TABLET. ONCE TO TWICE A DAY.
     Route: 048
     Dates: start: 20240323, end: 2024

REACTIONS (4)
  - Product use in unapproved indication [Recovering/Resolving]
  - Wrong technique in product usage process [Recovering/Resolving]
  - Chest pain [Recovering/Resolving]
  - Vomiting [Recovering/Resolving]

NARRATIVE: CASE EVENT DATE: 20240323
